FAERS Safety Report 5844215-4 (Version None)
Quarter: 2008Q3

REPORT INFORMATION
  Report Type: 
  Country: None (occurrence: None)
  Receive Date: 20080813
  Receipt Date: 20080801
  Transmission Date: 20090109
  Serious: Yes (Other)
  Sender: FDA-Public Use
  Company Number: JP-PFIZER INC-2008065074

PATIENT
  Age: 84 Year
  Sex: Male

DRUGS (1)
  1. LINEZOLID [Suspect]
     Route: 042

REACTIONS (1)
  - INTERSTITIAL LUNG DISEASE [None]
